FAERS Safety Report 9468669 (Version 1)
Quarter: 2013Q3

REPORT INFORMATION
  Report Type: Spontaneous
  Country: US (occurrence: None)
  Receive Date: 20130816
  Receipt Date: 20130816
  Transmission Date: 20140515
  Serious: Yes (Hospitalization, Other)
  Sender: FDA-Public Use
  Company Number: 2013-344

PATIENT
  Age: 40 Year
  Sex: Female

DRUGS (8)
  1. CLOZAPINE [Suspect]
     Indication: SCHIZOAFFECTIVE DISORDER
     Route: 048
     Dates: start: 2000
  2. TOPIRAMATE (TOPIRAMATE) [Concomitant]
  3. ALPRAZOLAM (ALPRAZOLAM) [Concomitant]
  4. VENLAFAXINE (VENLAFAXINE HYDROCHLORIDE) [Concomitant]
  5. OXYBUTYNIN CHLORIDE (OXYBUTYNIN HYDROCHLORIDE) [Concomitant]
  6. AMLODIPINE (AMLODIPINE BESILATE) [Concomitant]
  7. ZOLPIDEM (ZOLPIDEM TARTRATE) [Concomitant]
  8. DEXTROPROPOXYPHENE (DEXTROPROPOXYPHENE) [Concomitant]

REACTIONS (14)
  - Intestinal infarction [None]
  - Intestinal gangrene [None]
  - Respiratory arrest [None]
  - Septic shock [None]
  - Abdominal adhesions [None]
  - Dialysis [None]
  - Hepatomegaly [None]
  - Aspiration [None]
  - Hallucination [None]
  - Faecal incontinence [None]
  - Urinary incontinence [None]
  - Hypertension [None]
  - Constipation [None]
  - Paranoia [None]
